FAERS Safety Report 7597694-9 (Version None)
Quarter: 2011Q3

REPORT INFORMATION
  Report Type: 
  Country: None (occurrence: None)
  Receive Date: 20110708
  Receipt Date: 20110615
  Transmission Date: 20111222
  Serious: Yes (Hospitalization)
  Sender: FDA-Public Use
  Company Number: US-GLAXOSMITHKLINE-A0874751A

PATIENT
  Sex: Male

DRUGS (1)
  1. AVANDIA [Suspect]
     Indication: TYPE 2 DIABETES MELLITUS
     Dates: start: 20061101, end: 20070101

REACTIONS (16)
  - CARDIAC FAILURE CONGESTIVE [None]
  - PAIN [None]
  - MYOCARDIAL INFARCTION [None]
  - ARTERIOSCLEROSIS [None]
  - VENTRICULAR DYSFUNCTION [None]
  - TRANSIENT ISCHAEMIC ATTACK [None]
  - BLINDNESS [None]
  - ACUTE CORONARY SYNDROME [None]
  - ACCELERATED HYPERTENSION [None]
  - CARDIOVASCULAR DISORDER [None]
  - CEREBROVASCULAR ACCIDENT [None]
  - PULMONARY EMBOLISM [None]
  - PULMONARY HYPERTENSION [None]
  - CARDIOMYOPATHY [None]
  - CARDIAC DISORDER [None]
  - PERIPHERAL VASCULAR DISORDER [None]
